FAERS Safety Report 6344288-9 (Version None)
Quarter: 2009Q3

REPORT INFORMATION
  Report Type: 
  Country: None (occurrence: None)
  Receive Date: 20090908
  Receipt Date: 20090904
  Transmission Date: 20100115
  Serious: Yes (Life-Threatening)
  Sender: FDA-Public Use
  Company Number: JP-ASTRAZENECA-2009SE08629

PATIENT
  Age: 81 Year
  Sex: Female

DRUGS (6)
  1. MEROPENEM [Suspect]
     Indication: PYREXIA
  2. MEROPENEM [Suspect]
     Indication: DIARRHOEA
  3. AMPICILLIN SODIUM [Suspect]
     Indication: PYREXIA
  4. AMPICILLIN SODIUM [Suspect]
     Indication: DIARRHOEA
  5. CEFAZOLIN [Suspect]
  6. CEFACAPENE PIVOXIL HYDROCHLORIDE [Suspect]

REACTIONS (2)
  - COLITIS [None]
  - SEPTIC SHOCK [None]
